FAERS Safety Report 5542563-9 (Version None)
Quarter: 2007Q4

REPORT INFORMATION
  Report Type: 
  Country: None (occurrence: None)
  Receive Date: 20071123
  Receipt Date: 20070726
  Transmission Date: 20080405
  Serious: Yes (Other)
  Sender: FDA-Public Use
  Company Number: US-JNJFOC-20070706533

PATIENT
  Age: 69 Year
  Sex: Female
  Weight: 58.0604 kg

DRUGS (3)
  1. LEVAQUIN [Suspect]
     Indication: DIVERTICULITIS
     Dosage: 250 MG, 1 IN 1 DAY, ORAL
     Route: 048
     Dates: start: 20070724, end: 20070725
  2. VITAMIN B COMPLEX WITH VITAMIN C (BEMINAL WITH C FORTIS) [Concomitant]
  3. ZOLOFT [Concomitant]

REACTIONS (3)
  - ABDOMINAL PAIN UPPER [None]
  - INSOMNIA [None]
  - SWELLING FACE [None]
